FAERS Safety Report 19931484 (Version 3)
Quarter: 2022Q1

REPORT INFORMATION
  Report Type: Spontaneous
  Country: US (occurrence: US)
  Receive Date: 20211007
  Receipt Date: 20220107
  Transmission Date: 20220424
  Serious: Yes (Other)
  Sender: FDA-Public Use
  Company Number: US-ORGANON-O2110USA000306

PATIENT
  Sex: Female

DRUGS (6)
  1. ASMANEX [Suspect]
     Active Substance: MOMETASONE FUROATE
     Indication: Asthma
     Dosage: 60 DOSE COUNT INHALERS, TWO PUFFS ONCE A DAY
     Dates: start: 2019, end: 2020
  2. ASMANEX [Suspect]
     Active Substance: MOMETASONE FUROATE
     Dosage: 60 DOSE COUNT INHALERS, TWO PUFFS ONCE A DAY
     Dates: start: 2020, end: 2020
  3. ASMANEX [Suspect]
     Active Substance: MOMETASONE FUROATE
     Dosage: 60 DOSE COUNT INHALERS, TWO PUFFS ONCE A DAY
     Dates: start: 2020, end: 2020
  4. ASMANEX [Suspect]
     Active Substance: MOMETASONE FUROATE
     Dosage: 60 DOSE COUNT INHALERS, TWO PUFFS ONCE A DAY
     Dates: start: 2020
  5. ASMANEX [Suspect]
     Active Substance: MOMETASONE FUROATE
     Indication: Asthma
     Dosage: TWO PUFFS ONCE A DAY
     Dates: start: 202110, end: 20211124
  6. ALBUTEROL SULFATE [Suspect]
     Active Substance: ALBUTEROL SULFATE
     Indication: Throat tightness
     Dosage: RESCUE INHALER

REACTIONS (9)
  - Neuropathy peripheral [Recovered/Resolved]
  - Mycobacterium avium complex infection [Recovered/Resolved]
  - Blood cholesterol increased [Recovered/Resolved]
  - Throat tightness [Recovered/Resolved]
  - Device malfunction [Unknown]
  - Poor quality device used [Unknown]
  - Incorrect dose administered [Unknown]
  - Device malfunction [Unknown]
  - Poor quality device used [Unknown]

NARRATIVE: CASE EVENT DATE: 20200101
